FAERS Safety Report 14343052 (Version 1)
Quarter: 2018Q1

REPORT INFORMATION
  Report Type: Report from Study
  Country: US (occurrence: US)
  Receive Date: 20180102
  Receipt Date: 20180102
  Transmission Date: 20180509
  Serious: Yes (Other)
  Sender: FDA-Public Use
  Company Number: US-BAYER-2017-246450

PATIENT

DRUGS (2)
  1. ASPIRIN (ASA) [Suspect]
     Active Substance: ASPIRIN
     Dosage: UNK
  2. HEPARINOID [Interacting]
     Active Substance: CHONDROITIN SULFATE (BOVINE)
     Dosage: UNK

REACTIONS (5)
  - Extradural haematoma [None]
  - Drug administration error [None]
  - Spinal cord haematoma [None]
  - Labelled drug-drug interaction medication error [None]
  - Drug interaction [None]
